FAERS Safety Report 22112449 (Version 2)
Quarter: 2023Q2

REPORT INFORMATION
  Report Type: Spontaneous
  Country: US (occurrence: None)
  Receive Date: 20230319
  Receipt Date: 20230511
  Transmission Date: 20230721
  Serious: No
  Sender: FDA-Public Use
  Company Number: 2023A053066

PATIENT
  Sex: Female
  Weight: 123.8 kg

DRUGS (12)
  1. FASENRA [Suspect]
     Active Substance: BENRALIZUMAB
     Indication: Asthma
     Dosage: 30MG/ML EVERY EIGHT WEEKS
     Route: 058
  2. SYMBICORT [Suspect]
     Active Substance: BUDESONIDE\FORMOTEROL FUMARATE DIHYDRATE
     Dosage: UNKNOWN UNKNOWN
     Route: 055
  3. ROSUVASTATIN [Suspect]
     Active Substance: ROSUVASTATIN
     Dosage: UNKNOWN
     Route: 048
  4. INCRUSE ELLIPTA [Concomitant]
     Active Substance: UMECLIDINIUM BROMIDE
  5. ENTRESTO [Concomitant]
     Active Substance: SACUBITRIL\VALSARTAN
  6. CLONAZEPAM [Concomitant]
     Active Substance: CLONAZEPAM
  7. BUSPIRONE LAMOTRIGINE [Concomitant]
  8. ZOLOFT [Concomitant]
     Active Substance: SERTRALINE HYDROCHLORIDE
  9. FUROSEMIDE [Concomitant]
     Active Substance: FUROSEMIDE
  10. METOPROLOL [Concomitant]
     Active Substance: METOPROLOL
  11. OZEMPIC [Concomitant]
     Active Substance: SEMAGLUTIDE
  12. HUMULIN R U-500 [Concomitant]
     Active Substance: INSULIN HUMAN

REACTIONS (6)
  - Withdrawal syndrome [Unknown]
  - Sneezing [Unknown]
  - Dyspnoea [Unknown]
  - Rhinorrhoea [Unknown]
  - Product dose omission issue [Unknown]
  - Device leakage [Unknown]
